FAERS Safety Report 24739473 (Version 1)
Quarter: 2024Q4

REPORT INFORMATION
  Report Type: Report from Study
  Country: ES (occurrence: ES)
  Receive Date: 20241216
  Receipt Date: 20241216
  Transmission Date: 20250114
  Serious: Yes (Hospitalization, Other)
  Sender: TEVA
  Company Number: None

PATIENT
  Age: 88 Year
  Sex: Male

DRUGS (12)
  1. LEVOFLOXACIN [Suspect]
     Active Substance: LEVOFLOXACIN
     Indication: Infection
     Dosage: 1 TABLET/24H;?14 TABLETS
     Route: 048
     Dates: start: 20240910, end: 20241011
  2. METHYLPREDNISOLONE [Concomitant]
     Active Substance: METHYLPREDNISOLONE
     Indication: Product used for unknown indication
     Dosage: 1 APPLICATION / 12H;?METHYLPREDNISOLONE (888A)
     Route: 061
  3. DEXCHLORPHENIRAMINE [Concomitant]
     Active Substance: DEXCHLORPHENIRAMINE
     Indication: Product used for unknown indication
     Dosage: 1 TABLET/24H;?20 TABLETS
     Route: 048
  4. RIFAMPIN [Suspect]
     Active Substance: RIFAMPIN
     Indication: Infection
     Dosage: 2 CAPSULES / 24H;?60 CAPSULES
     Route: 048
     Dates: start: 20240925, end: 20241011
  5. PYRILAMINE [Concomitant]
     Active Substance: PYRILAMINE
     Indication: Product used for unknown indication
     Dosage: 10 ML /8H; ?MEPIRAMINA (1908A)
     Route: 048
  6. FUSIDIC ACID [Concomitant]
     Active Substance: FUSIDIC ACID
     Indication: Product used for unknown indication
     Dosage: 1 APPLICATION / 12H;?FUSIDIC ACID 20 MG/G CREAM 30 G 1 TUBE
     Route: 061
  7. OMEPRAZOLE [Concomitant]
     Active Substance: OMEPRAZOLE
     Indication: Product used for unknown indication
     Dosage: 1 CAPSULE/24H;?56 CAPSULES
     Route: 048
  8. ASPIRIN [Concomitant]
     Active Substance: ASPIRIN
     Indication: Product used for unknown indication
     Dosage: 1 TABLET/24H;?100 GASTRO-RESISTANT TABLETS
     Route: 048
  9. dutasteride tamsulosin [Concomitant]
     Indication: Product used for unknown indication
     Dosage: 1 CAPSULE/24H;?DUTASTERIDE + TAMSULOSIN
     Route: 048
  10. CHOLECALCIFEROL [Concomitant]
     Active Substance: CHOLECALCIFEROL
     Indication: Product used for unknown indication
     Dosage: 1 CAPSULE/30 DAYS;? 5 CAPSULES
     Route: 048
  11. BUDESONIDE\FORMOTEROL\GLYCOPYRRONIUM [Concomitant]
     Active Substance: BUDESONIDE\FORMOTEROL\GLYCOPYRRONIUM
     Indication: Product used for unknown indication
     Dosage: 2 DOSES/12H (INHALATION);?5 MICROGRAMS/7.2 MICROGRAMS/160 MICROGRAMS SUSPENSION FOR INHALATION IN...
     Route: 055
  12. DEFLAZACORT [Concomitant]
     Active Substance: DEFLAZACORT
     Indication: Product used for unknown indication
     Dosage: 1 TABLET/24H;?10 TABLETS
     Route: 048

REACTIONS (1)
  - Toxic skin eruption [Recovered/Resolved]

NARRATIVE: CASE EVENT DATE: 20241011
